FAERS Safety Report 8963765 (Version 2)
Quarter: 2012Q4

REPORT INFORMATION
  Report Type: 
  Country: CA (occurrence: CA)
  Receive Date: 20121214
  Receipt Date: 20121230
  Transmission Date: 20130627
  Serious: Yes (Other)
  Sender: FDA-Public Use
  Company Number: CA-AMGEN-CANSP2012079789

PATIENT
  Age: 85 Year
  Sex: Male

DRUGS (6)
  1. PROLIA [Suspect]
     Indication: OSTEOPOROSIS
     Dosage: 60 mg/ml, one time dose
     Route: 058
     Dates: start: 20120925, end: 20120925
  2. CRESTOR [Concomitant]
     Indication: LIPIDS INCREASED
     Dosage: 20 mg, qd
     Route: 048
  3. COVERSYL                           /00790702/ [Concomitant]
     Indication: BLOOD PRESSURE INCREASED
     Dosage: 8 mg, qd
     Route: 048
  4. PROSCAR [Concomitant]
     Indication: BENIGN PROSTATIC HYPERPLASIA
     Dosage: 5 mg, qd
     Route: 048
  5. CALCIUM CITRATE [Concomitant]
     Indication: OSTEOPOROSIS
     Dosage: 300 mg, qd
     Route: 048
     Dates: start: 2011
  6. VITAMIN D                          /00318501/ [Concomitant]
     Indication: OSTEOPOROSIS
     Dosage: UNK UNK, qd
     Route: 048
     Dates: start: 2011

REACTIONS (8)
  - Drug eruption [Recovering/Resolving]
  - Rash pruritic [Recovering/Resolving]
  - Rash maculo-papular [Recovering/Resolving]
  - Generalised erythema [Recovering/Resolving]
  - Oedema peripheral [Recovering/Resolving]
  - Glycosylated haemoglobin increased [Unknown]
  - Neutrophil count increased [Unknown]
  - White blood cell count increased [Unknown]
